FAERS Safety Report 16959181 (Version 4)
Quarter: 2021Q2

REPORT INFORMATION
  Report Type: Report from Study
  Country: CO (occurrence: CO)
  Receive Date: 20191024
  Receipt Date: 20210609
  Transmission Date: 20210716
  Serious: Yes (Other)
  Sender: FDA-Public Use
  Company Number: NVSC2019CO015360

PATIENT
  Sex: Male

DRUGS (2)
  1. TASIGNA [Suspect]
     Active Substance: NILOTINIB
     Indication: CHRONIC MYELOID LEUKAEMIA
     Dosage: 600 MG, QD
     Route: 048
     Dates: start: 20191001
  2. TASIGNA [Suspect]
     Active Substance: NILOTINIB
     Dosage: 600 MG
     Route: 048

REACTIONS (9)
  - Silent myocardial infarction [Unknown]
  - Inappropriate schedule of product administration [Unknown]
  - Cardiac failure [Unknown]
  - Heart rate decreased [Unknown]
  - Muscle rupture [Unknown]
  - Chest pain [Unknown]
  - Headache [Unknown]
  - Effusion [Unknown]
  - Cardiac disorder [Unknown]
